FAERS Safety Report 6085886-X (Version None)
Quarter: 2009Q1

REPORT INFORMATION
  Report Type: 
  Country: None (occurrence: None)
  Receive Date: 20090220
  Receipt Date: 20090209
  Transmission Date: 20090719
  Serious: Yes (Hospitalization)
  Sender: FDA-Public Use
  Company Number: JP-JNJFOC-20090200598

PATIENT
  Sex: Male
  Weight: 55 kg

DRUGS (5)
  1. REMICADE [Suspect]
     Route: 042
  2. REMICADE [Suspect]
     Indication: CROHN'S DISEASE
     Route: 042
  3. PENTASA [Concomitant]
     Indication: CROHN'S DISEASE
     Route: 048
  4. GASTROM [Concomitant]
     Indication: CROHN'S DISEASE
     Route: 048
  5. PROMAC [Concomitant]
     Indication: CROHN'S DISEASE
     Route: 048

REACTIONS (4)
  - ANAL FISTULA EXCISION [None]
  - PULMONARY TUBERCULOSIS [None]
  - TRANSAMINASES INCREASED [None]
  - TUBERCULOUS PLEURISY [None]
